FAERS Safety Report 9380940 (Version 1)
Quarter: 2013Q3

REPORT INFORMATION
  Report Type: Spontaneous
  Country: AT (occurrence: AT)
  Receive Date: 20130703
  Receipt Date: 20130703
  Transmission Date: 20140515
  Serious: Yes (Other)
  Sender: FDA-Public Use
  Company Number: AT-ROCHE-1244036

PATIENT
  Age: 59 Year
  Sex: Female
  Weight: 68 kg

DRUGS (3)
  1. TRASTUZUMAB EMTANSINE [Suspect]
     Indication: BREAST CANCER METASTATIC
     Route: 042
     Dates: start: 20130104, end: 20130215
  2. TRITTICO [Concomitant]
     Indication: DEPRESSION
     Route: 048
  3. EFECTIN [Concomitant]
     Indication: DEPRESSION
     Route: 048

REACTIONS (1)
  - Disease progression [Not Recovered/Not Resolved]
